FAERS Safety Report 24710620 (Version 1)
Quarter: 2024Q4

REPORT INFORMATION
  Report Type: Spontaneous
  Country: US (occurrence: US)
  Receive Date: 20241209
  Receipt Date: 20241209
  Transmission Date: 20250115
  Serious: No
  Sender: SUNOVION
  Company Number: US-SMPA-2024SPA005425AA

PATIENT

DRUGS (2)
  1. GEMTESA [Suspect]
     Active Substance: VIBEGRON
     Indication: Hypertonic bladder
     Dosage: 75 MG, QD
     Route: 048
     Dates: start: 2022
  2. GEMTESA [Suspect]
     Active Substance: VIBEGRON
     Dosage: UNK, BID
     Route: 048

REACTIONS (3)
  - Therapeutic product effect decreased [Unknown]
  - Therapy interrupted [Unknown]
  - Off label use [Unknown]
